FAERS Safety Report 21273734 (Version 1)
Quarter: 2022Q3

REPORT INFORMATION
  Report Type: Spontaneous
  Country: JP (occurrence: JP)
  Receive Date: 20220831
  Receipt Date: 20220831
  Transmission Date: 20221027
  Serious: Yes (Other)
  Sender: FDA-Public Use
  Company Number: JP-BPIPOOL-BPILit38051

PATIENT
  Age: 80 Year
  Sex: Female

DRUGS (4)
  1. LEUCOVORIN CALCIUM [Suspect]
     Active Substance: LEUCOVORIN CALCIUM
     Indication: Rectal cancer
     Dosage: (225 MG/BODY)
     Route: 065
  2. OXALIPLATIN [Suspect]
     Active Substance: OXALIPLATIN
     Indication: Rectal cancer
     Dosage: (180 MG/BODY)
     Route: 065
  3. BEVACIZUMAB [Suspect]
     Active Substance: BEVACIZUMAB
     Indication: Rectal cancer
     Dosage: MODIFIED FOLFOX6 WITH BEVACIZUMAB (180 MG/BODY)
     Route: 065
  4. FLUOROURACIL [Suspect]
     Active Substance: FLUOROURACIL
     Indication: Rectal cancer
     Dosage: BOLUS (400MG/BODY), INFUSIONAL( 2400MG/BODY)
     Route: 065

REACTIONS (4)
  - Proteinuria [Recovered/Resolved]
  - Hypertension [Recovered/Resolved]
  - Neutropenia [Unknown]
  - Leukopenia [Unknown]
